FAERS Safety Report 12928141 (Version 1)
Quarter: 2016Q4

REPORT INFORMATION
  Report Type: Spontaneous
  Country: US (occurrence: US)
  Receive Date: 20161110
  Receipt Date: 20161110
  Transmission Date: 20170207
  Serious: No
  Sender: FDA-Public Use
  Company Number: US-TEVA-706155USA

PATIENT
  Age: 73 Year
  Sex: Female

DRUGS (1)
  1. ESZOPICLONE. [Suspect]
     Active Substance: ESZOPICLONE

REACTIONS (4)
  - Drug ineffective [Unknown]
  - Sleep-related eating disorder [Unknown]
  - Poor quality sleep [Unknown]
  - Somnambulism [Unknown]

NARRATIVE: CASE EVENT DATE: 20161004
